FAERS Safety Report 12385514 (Version 1)
Quarter: 2016Q2

REPORT INFORMATION
  Report Type: Report from Study
  Country: US (occurrence: US)
  Receive Date: 20160519
  Receipt Date: 20160519
  Transmission Date: 20160815
  Serious: Yes (Other)
  Sender: FDA-Public Use
  Company Number: US-ACTELION-A-NJ2015-122824

PATIENT
  Age: 66 Year
  Sex: Female

DRUGS (4)
  1. TREPROSTINIL DIOLAMIN [Concomitant]
     Active Substance: TREPROSTINIL DIOLAMINE
  2. AMLODIPINE [Concomitant]
     Active Substance: AMLODIPINE BESYLATE
  3. TRACLEER [Suspect]
     Active Substance: BOSENTAN
     Indication: PULMONARY ARTERIAL HYPERTENSION
     Dosage: UNK
     Route: 048
  4. WARFARIN [Concomitant]
     Active Substance: WARFARIN

REACTIONS (6)
  - Gastrointestinal disorder [Unknown]
  - Headache [Unknown]
  - Seizure [Unknown]
  - Diarrhoea [Unknown]
  - Fatigue [Unknown]
  - Faeces discoloured [Unknown]
